FAERS Safety Report 7156924-8 (Version None)
Quarter: 2010Q4

REPORT INFORMATION
  Report Type: 
  Country: None (occurrence: None)
  Receive Date: 20101129
  Receipt Date: 20101112
  Transmission Date: 20110411
  Serious: Yes (Life-Threatening, Hospitalization, Other)
  Sender: FDA-Public Use
  Company Number: 20100445

PATIENT
  Age: 52 Year
  Sex: Male
  Weight: 81 kg

DRUGS (1)
  1. VENOFER [Suspect]
     Indication: ANAEMIA
     Dosage: 200 MG, 3X/WK, TOTAL 5 DOSES INTRAVENOUS BOLUS
     Route: 040
     Dates: start: 20100909, end: 20100909

REACTIONS (2)
  - MYOCARDIAL INFARCTION [None]
  - SINUS TACHYCARDIA [None]
